FAERS Safety Report 5116734-X (Version None)
Quarter: 2006Q3

REPORT INFORMATION
  Report Type: 
  Country: None (occurrence: None)
  Receive Date: 20060925
  Receipt Date: 20060912
  Transmission Date: 20061208
  Serious: Yes (Hospitalization)
  Sender: FDA-Public Use
  Company Number: US-2006-013780

PATIENT
  Age: 62 Year
  Sex: Female
  Weight: 111 kg

DRUGS (6)
  1. ULTRAVIST 300 [Suspect]
     Indication: COMPUTERISED TOMOGRAM
     Dosage: 80 ML, 1 DOSE, INTRAVENOUS
     Route: 042
     Dates: start: 20060523, end: 20060523
  2. ROCEPHIN [Concomitant]
  3. IBUPROFEN [Concomitant]
  4. PENICILLIN [Concomitant]
  5. BENADRY                                      (DIPHENYDRAMINE HYDROCHLO [Concomitant]
  6. MEDROL [Concomitant]

REACTIONS (12)
  - ANAEMIA [None]
  - CARDIAC FAILURE CONGESTIVE [None]
  - CHRONIC OBSTRUCTIVE PULMONARY DISEASE [None]
  - CONDITION AGGRAVATED [None]
  - CORONARY ARTERY BYPASS [None]
  - CORONARY ARTERY DISEASE [None]
  - DEPRESSION [None]
  - DIABETES MELLITUS [None]
  - FLUID OVERLOAD [None]
  - MOBILITY DECREASED [None]
  - POST PROCEDURAL COMPLICATION [None]
  - RESPIRATORY DISTRESS [None]
